FAERS Safety Report 7457756-3 (Version None)
Quarter: 2011Q2

REPORT INFORMATION
  Report Type: 
  Country: None (occurrence: None)
  Receive Date: 20110504
  Receipt Date: 20110502
  Transmission Date: 20111010
  Serious: No
  Sender: FDA-Public Use
  Company Number: US-PFIZER INC-2011094273

PATIENT
  Sex: Male
  Weight: 13.152 kg

DRUGS (2)
  1. CHILDREN'S ADVIL COLD [Suspect]
     Indication: NASOPHARYNGITIS
  2. CHILDREN'S ADVIL COLD [Suspect]
     Indication: COUGH
     Dosage: ONE TEASPOONFUL ONCE A DAY
     Route: 048
     Dates: start: 20110430, end: 20110501

REACTIONS (1)
  - INSOMNIA [None]
